FAERS Safety Report 13850903 (Version 2)
Quarter: 2017Q3

REPORT INFORMATION
  Report Type: Spontaneous
  Country: US (occurrence: US)
  Receive Date: 20170810
  Receipt Date: 20170830
  Transmission Date: 20171127
  Serious: Yes (Other)
  Sender: FDA-Public Use
  Company Number: US-TAKEDA-2017TUS016436

PATIENT
  Age: 35 Year
  Sex: Female
  Weight: 78.01 kg

DRUGS (1)
  1. ENTYVIO [Suspect]
     Active Substance: VEDOLIZUMAB
     Indication: CROHN^S DISEASE
     Dosage: 300 MG, UNK
     Route: 042
     Dates: start: 201509

REACTIONS (3)
  - Postpartum haemorrhage [Recovered/Resolved]
  - Nephrolithiasis [Unknown]
  - Pregnancy [Unknown]

NARRATIVE: CASE EVENT DATE: 20170628
